FAERS Safety Report 7977690-X (Version None)
Quarter: 2011Q4

REPORT INFORMATION
  Report Type: 
  Country: None (occurrence: None)
  Receive Date: 20111214
  Receipt Date: 20111128
  Transmission Date: 20120403
  Serious: No
  Sender: FDA-Public Use
  Company Number: US-AMGEN-USASP2011055545

PATIENT
  Age: 54 Year
  Sex: Female

DRUGS (2)
  1. ENBREL [Suspect]
     Indication: RHEUMATOID ARTHRITIS
     Dosage: 50 MG, QWK
     Dates: start: 20110601
  2. FENTANYL [Concomitant]

REACTIONS (7)
  - LOSS OF CONSCIOUSNESS [None]
  - HEAD INJURY [None]
  - DIZZINESS [None]
  - VOMITING [None]
  - DRUG WITHDRAWAL SYNDROME [None]
  - NAUSEA [None]
  - HEADACHE [None]
